FAERS Safety Report 4542418-2 (Version None)
Quarter: 2004Q4

REPORT INFORMATION
  Report Type: 
  Country: None (occurrence: None)
  Receive Date: 20041230
  Receipt Date: 20040914
  Transmission Date: 20050328
  Serious: Yes (Hospitalization)
  Sender: FDA-Public Use
  Company Number: DE-ABBOTT-04P-062-0273379-00

PATIENT
  Sex: Male
  Weight: 92 kg

DRUGS (6)
  1. HUMIRA [Suspect]
     Indication: ANKYLOSING SPONDYLITIS
     Route: 058
     Dates: start: 20040609, end: 20040721
  2. HUMIRA [Suspect]
     Route: 058
     Dates: start: 20040804, end: 20040923
  3. VOLTAREN [Concomitant]
     Indication: ANKYLOSING SPONDYLITIS
     Dates: start: 20030601
  4. INDOMETHACIN [Concomitant]
     Indication: ANKYLOSING SPONDYLITIS
     Dates: start: 20030101, end: 20031101
  5. OMEPRAZOLE [Concomitant]
     Indication: GASTRITIS
     Dates: start: 20020220, end: 20040331
  6. OMEPRAZOLE [Concomitant]
     Dates: start: 20040401

REACTIONS (2)
  - MUSCLE ATROPHY [None]
  - MYOPATHY [None]
